FAERS Safety Report 10872083 (Version 3)
Quarter: 2015Q2

REPORT INFORMATION
  Report Type: Report from Study
  Country: CA (occurrence: CA)
  Receive Date: 20150226
  Receipt Date: 20150403
  Transmission Date: 20150821
  Serious: Yes (Other)
  Sender: FDA-Public Use
  Company Number: PHHY2015CA021674

PATIENT
  Age: 67 Year
  Sex: Female

DRUGS (39)
  1. ACLASTA [Suspect]
     Active Substance: ZOLEDRONIC ACID
     Indication: OSTEOPOROSIS
     Dosage: UNK
     Route: 042
     Dates: start: 2008
  2. ACLASTA [Suspect]
     Active Substance: ZOLEDRONIC ACID
     Dosage: 5 MG, UNK
     Route: 042
     Dates: start: 20110218
  3. ACETAMINOPHEN. [Concomitant]
     Active Substance: ACETAMINOPHEN
     Indication: PAIN
     Dosage: 2 DF, QID (PRN, 1 MONTH PRESCRIPTION RENEWABLE FOR 18 MONTHS)
     Route: 048
     Dates: start: 20141122
  4. PANTOPRAZOLE [Concomitant]
     Active Substance: PANTOPRAZOLE SODIUM
     Indication: PRODUCT USED FOR UNKNOWN INDICATION
     Dosage: 1 DF, QD (30 ENTEROSOLUBLETABLETS, RENEWABLE FOR 18 MONTHS)
     Route: 048
     Dates: start: 20141122
  5. ASAPHEN [Concomitant]
     Active Substance: ASPIRIN
     Indication: PRODUCT USED FOR UNKNOWN INDICATION
     Dosage: 1 DF, QD (30 TABLET PRESCRIPTION, RENEWABLE FOR 18 MONTHS)
     Route: 065
     Dates: start: 20141122
  6. HYDRALAZINE [Concomitant]
     Active Substance: HYDRALAZINE HYDROCHLORIDE
     Indication: PRODUCT USED FOR UNKNOWN INDICATION
     Dosage: 0.5 DF, BID
     Route: 048
     Dates: start: 20141209
  7. ATACAND [Concomitant]
     Active Substance: CANDESARTAN CILEXETIL
     Indication: PRODUCT USED FOR UNKNOWN INDICATION
     Route: 065
  8. ANUZINC [Concomitant]
     Indication: PRODUCT USED FOR UNKNOWN INDICATION
     Dosage: UNK UNK, BID (PRN, RENEWABLE FOR 18 MONTHS)
     Route: 054
     Dates: start: 20141122
  9. DEMEROL [Concomitant]
     Active Substance: MEPERIDINE HYDROCHLORIDE
     Indication: PRODUCT USED FOR UNKNOWN INDICATION
     Route: 065
  10. ACLASTA [Suspect]
     Active Substance: ZOLEDRONIC ACID
     Dosage: 5 MG, UNK
     Route: 042
     Dates: start: 20130208
  11. SERAX [Concomitant]
     Active Substance: OXAZEPAM
     Indication: PRODUCT USED FOR UNKNOWN INDICATION
     Dosage: 1 DF, QHS (30 TABLETS, RENEWABLE FOR 1 YEAR)
     Route: 048
     Dates: start: 20141122
  12. DM SYRUP [Concomitant]
     Indication: PRODUCT USED FOR UNKNOWN INDICATION
     Dosage: 15 ML, BID (PRN 250 ML)
     Route: 065
     Dates: start: 20140909
  13. PLAVIX [Concomitant]
     Active Substance: CLOPIDOGREL BISULFATE
     Indication: PRODUCT USED FOR UNKNOWN INDICATION
     Route: 065
  14. NITROLINGUAL [Concomitant]
     Active Substance: NITROGLYCERIN
     Indication: PRODUCT USED FOR UNKNOWN INDICATION
     Dosage: 1 DF, UNK (UP TO 3 TIMES FOR 5 MINUTES, 3 PRN, RENEWABLE FOR 18 MONTHS)
     Route: 060
     Dates: start: 20141122
  15. LIPITOR [Concomitant]
     Active Substance: ATORVASTATIN CALCIUM
     Indication: PRODUCT USED FOR UNKNOWN INDICATION
     Dosage: 1 DF, QHS (RENEWABLE FOR 18 MONTHS)
     Route: 048
     Dates: start: 20141122
  16. MCAL [Concomitant]
     Indication: PRODUCT USED FOR UNKNOWN INDICATION
     Dosage: 1 DF, BID (500 MG/400 I.U. 60 TABLETS, RENEWABLE FOR 18 MONTHS)
     Route: 048
     Dates: start: 20141122
  17. LASIX [Concomitant]
     Active Substance: FUROSEMIDE
     Indication: PRODUCT USED FOR UNKNOWN INDICATION
     Dosage: 1 DF, BID (20 MG, TOTAL 60 MG)
     Route: 048
     Dates: start: 20141209
  18. IRON SULFATE [Concomitant]
     Active Substance: FERROUS SULFATE ANHYDROUS
     Indication: PRODUCT USED FOR UNKNOWN INDICATION
     Dosage: 1 DF, BID
     Route: 048
     Dates: start: 20141209
  19. PENICILLIN [Concomitant]
     Active Substance: PENICILLIN
     Indication: PRODUCT USED FOR UNKNOWN INDICATION
     Route: 065
  20. ACLASTA [Suspect]
     Active Substance: ZOLEDRONIC ACID
     Dosage: 5 MG, UNK
     Route: 042
     Dates: start: 20120220
  21. LASIX [Concomitant]
     Active Substance: FUROSEMIDE
     Dosage: 1 DF, BID (40 MG, TOTAL 60 MG)
     Route: 048
     Dates: start: 20141209
  22. ACLASTA [Suspect]
     Active Substance: ZOLEDRONIC ACID
     Dosage: 5 MG, UNK
     Route: 042
     Dates: start: 20100218
  23. ACLASTA [Suspect]
     Active Substance: ZOLEDRONIC ACID
     Dosage: 5 MG, UNK
     Route: 042
     Dates: start: 20140210
  24. ACLASTA [Suspect]
     Active Substance: ZOLEDRONIC ACID
     Dosage: 5 MG, UNK
     Route: 042
     Dates: start: 20150220
  25. SPIRIVA [Concomitant]
     Active Substance: TIOTROPIUM BROMIDE MONOHYDRATE
     Indication: PRODUCT USED FOR UNKNOWN INDICATION
     Dosage: 1 DF, QD (RENEWABLE FOR 18 MONTHS)
     Route: 055
     Dates: start: 20141122
  26. SENOKOT [Concomitant]
     Active Substance: SENNOSIDES
     Indication: PRODUCT USED FOR UNKNOWN INDICATION
     Dosage: 2 DF, BID (PRN, G128, RENEWABLE FOR 18 MONTHS)
     Route: 048
     Dates: start: 20141122
  27. ASMANEX [Concomitant]
     Active Substance: MOMETASONE FUROATE
     Indication: PRODUCT USED FOR UNKNOWN INDICATION
     Dosage: 1 DF, QD (OR UNTIL COUGH ENDS, RENEWABLE FOR 1 YEAR)
     Route: 055
     Dates: start: 20140825
  28. DOCUSATE [Concomitant]
     Active Substance: DOCUSATE
     Indication: PRODUCT USED FOR UNKNOWN INDICATION
     Dosage: 2 DF, QD (RENEWABLE FOR 18 MONTHS)
     Route: 048
     Dates: start: 20141122
  29. MONOCOR [Concomitant]
     Active Substance: BISOPROLOL FUMARATE
     Indication: PRODUCT USED FOR UNKNOWN INDICATION
     Dosage: 0.5 DF, QD (30 TALETS, RENEWABLE FOR 18 MONTHS)
     Route: 048
     Dates: start: 20141122
  30. XARELTO [Concomitant]
     Active Substance: RIVAROXABAN
     Indication: PRODUCT USED FOR UNKNOWN INDICATION
     Dosage: 1 DF, QD (WITH FOOD, RENEWABLE FOR 18 MONTHS)
     Route: 065
     Dates: start: 20141122
  31. METFORMIN [Concomitant]
     Active Substance: METFORMIN HYDROCHLORIDE
     Indication: PRODUCT USED FOR UNKNOWN INDICATION
     Dosage: 0.5 DF, BID (AT SUPPER, 1 MONTH PRESCRIPTION, RENEWABLE FOR 18 MONTHS)
     Route: 065
     Dates: start: 20141122
  32. SYMBICORT [Concomitant]
     Active Substance: BUDESONIDE\FORMOTEROL FUMARATE DIHYDRATE
     Indication: PRODUCT USED FOR UNKNOWN INDICATION
     Dosage: 1 DF, BID (FOR 30 DAYS, PRESCRIPTION FOR 120 DOSES, RENEWABLE 6 TIMES)
     Route: 055
     Dates: start: 20141126
  33. CODEINE [Concomitant]
     Active Substance: CODEINE
     Indication: PRODUCT USED FOR UNKNOWN INDICATION
     Dosage: UNK
     Route: 065
  34. ALTACE [Concomitant]
     Active Substance: RAMIPRIL
     Indication: PRODUCT USED FOR UNKNOWN INDICATION
     Route: 065
  35. AVELOX [Concomitant]
     Active Substance: MOXIFLOXACIN HYDROCHLORIDE
     Indication: PRODUCT USED FOR UNKNOWN INDICATION
     Dosage: 1 DF, QD (FOR 5 DAYS, NON RENEWABLE)
     Route: 065
     Dates: start: 20140522
  36. NASONEX [Concomitant]
     Active Substance: MOMETASONE FUROATE
     Indication: PRODUCT USED FOR UNKNOWN INDICATION
     Dosage: 2 DF, QD (RENEWABLE ONCE)
     Route: 055
     Dates: start: 20140702
  37. VENTOLIN HFA [Concomitant]
     Active Substance: ALBUTEROL SULFATE
     Indication: PRODUCT USED FOR UNKNOWN INDICATION
     Dosage: 4 DF, QID (2 TO 4 INHALATIONS, PRN, RENEWABLE FOR 18 MONTHS)
     Route: 055
     Dates: start: 20141122
  38. IMDUR [Concomitant]
     Active Substance: ISOSORBIDE MONONITRATE
     Indication: PRODUCT USED FOR UNKNOWN INDICATION
     Dosage: 0.5 DF, QD (1 MONTH PRESCRIPTION, RENEWABLE FOR 18 MONTHS)
     Route: 048
     Dates: start: 20141122
  39. ALDACTONE [Concomitant]
     Active Substance: SPIRONOLACTONE
     Indication: PRODUCT USED FOR UNKNOWN INDICATION
     Dosage: 1 DF, QD
     Route: 048
     Dates: start: 20141209

REACTIONS (31)
  - Renal failure [Unknown]
  - Acute myocardial infarction [Unknown]
  - Angina unstable [Unknown]
  - Seroma [Unknown]
  - Restrictive pulmonary disease [Unknown]
  - Rib fracture [Unknown]
  - Ischaemic cardiomyopathy [Unknown]
  - Pneumonia [Unknown]
  - Cardiac disorder [Unknown]
  - Post procedural complication [Unknown]
  - Arteriosclerosis [Unknown]
  - Melaena [Unknown]
  - Type 2 diabetes mellitus [Unknown]
  - Ejection fraction decreased [Unknown]
  - Shock [Unknown]
  - Drug hypersensitivity [Unknown]
  - Prurigo [Unknown]
  - Anaemia [Unknown]
  - Coronary artery dissection [Unknown]
  - Cardiac arrest [Unknown]
  - Tricuspid valve incompetence [Unknown]
  - Ataxia telangiectasia [Unknown]
  - Myocardial infarction [Unknown]
  - Pulmonary oedema [Recovered/Resolved]
  - Hiatus hernia [Unknown]
  - Female genital tract fistula [Unknown]
  - Sleep apnoea syndrome [Unknown]
  - Pain [Unknown]
  - Abdominal pain upper [Unknown]
  - Diverticulitis [Unknown]
  - Mitral valve incompetence [Unknown]

NARRATIVE: CASE EVENT DATE: 2009
